FAERS Safety Report 19954735 (Version 1)
Quarter: 2021Q4

REPORT INFORMATION
  Report Type: Spontaneous
  Country: US (occurrence: US)
  Receive Date: 20211012
  Receipt Date: 20211012
  Transmission Date: 20220303
  Serious: Yes (Other)
  Sender: FDA-Public Use
  Company Number: None

PATIENT
  Age: 67 Year
  Sex: Female

DRUGS (1)
  1. HUMIRA [Suspect]
     Active Substance: ADALIMUMAB
     Indication: Arthritis enteropathic
     Dosage: ?          OTHER FREQUENCY:Q 3 WEEKS;
     Route: 058
     Dates: start: 20210820

REACTIONS (2)
  - Myocardial infarction [None]
  - Joint swelling [None]

NARRATIVE: CASE EVENT DATE: 20181006
